FAERS Safety Report 8548469-5 (Version None)
Quarter: 2012Q3

REPORT INFORMATION
  Report Type: 
  Country: None (occurrence: None)
  Receive Date: 20120717
  Receipt Date: 20120709
  Transmission Date: 20120928
  Serious: Yes (Other)
  Sender: FDA-Public Use
  Company Number: GER/UKI/11/0018623

PATIENT
  Age: 22 Year
  Sex: Female

DRUGS (6)
  1. ESCITALOPRAM OXALATE [Suspect]
     Indication: ANXIETY
     Dosage: 10 MG, 1 IN 1 D, ORAL ; 10 MG, 2 IN 1 D, ORAL
     Route: 048
     Dates: start: 20101125, end: 20101230
  2. ESCITALOPRAM OXALATE [Suspect]
     Indication: ANXIETY
     Dosage: 10 MG, 1 IN 1 D, ORAL ; 10 MG, 2 IN 1 D, ORAL
     Route: 048
     Dates: start: 20101230, end: 20110520
  3. ORPHENADRINE CITRATE [Concomitant]
  4. RISPERIDONE [Suspect]
     Indication: LEARNING DISABILITY
     Dosage: ORAL ; 1.5 MG, 1 IN 1 D, ORAL ;1.5 MG, 1 IN 1 D, ORAL
     Route: 048
     Dates: start: 20100708, end: 20100929
  5. RISPERIDONE [Suspect]
     Indication: LEARNING DISABILITY
     Dosage: ORAL ; 1.5 MG, 1 IN 1 D, ORAL ;1.5 MG, 1 IN 1 D, ORAL
     Route: 048
     Dates: start: 20000415, end: 20100708
  6. RISPERIDONE [Suspect]
     Indication: LEARNING DISABILITY
     Dosage: ORAL ; 1.5 MG, 1 IN 1 D, ORAL ;1.5 MG, 1 IN 1 D, ORAL
     Route: 048
     Dates: start: 20101101

REACTIONS (4)
  - OCULOGYRIC CRISIS [None]
  - ANXIETY [None]
  - DISEASE RECURRENCE [None]
  - DISTURBANCE IN SOCIAL BEHAVIOUR [None]
